FAERS Safety Report 6096999-0 (Version None)
Quarter: 2009Q1

REPORT INFORMATION
  Report Type: 
  Country: None (occurrence: None)
  Receive Date: 20090227
  Receipt Date: 20090216
  Transmission Date: 20090719
  Serious: Yes (Hospitalization, Other)
  Sender: FDA-Public Use
  Company Number: PHHY2009JP05682

PATIENT
  Sex: Male

DRUGS (30)
  1. DIOVAN [Suspect]
     Indication: HYPERTENSION
     Dosage: 40 MG, QD
     Route: 048
     Dates: start: 20071226, end: 20080901
  2. RIZE [Concomitant]
     Dosage: UNK
     Route: 048
     Dates: start: 20021129, end: 20080901
  3. TRAVELMIN [Concomitant]
     Dosage: 3 DF, UNK
     Route: 048
     Dates: start: 20021129, end: 20080901
  4. CEROCRAL [Concomitant]
     Dosage: UNK
     Route: 048
     Dates: end: 20080901
  5. MERISLON [Concomitant]
     Dosage: UNK
     Route: 048
     Dates: start: 20010314, end: 20080901
  6. PANALDINE [Concomitant]
     Dosage: UNK
     Route: 048
     Dates: end: 20080901
  7. SOLITA-T3 INJECTION [Concomitant]
     Dosage: 200 ML, UNK
     Dates: start: 20080404
  8. SOLITA-T3 INJECTION [Concomitant]
     Dosage: 200 ML, UNK
  9. SOLITA-T3 INJECTION [Concomitant]
     Dosage: 1000 ML, UNK
  10. SOLITA-T3 INJECTION [Concomitant]
     Dosage: 500 ML, UNK
     Dates: end: 20080105
  11. MEYLON [Concomitant]
     Dosage: 20 ML, UNK
     Dates: start: 20080404
  12. MEYLON [Concomitant]
     Dosage: 20 ML, UNK
     Dates: end: 20080421
  13. VEEN-F [Concomitant]
     Dosage: 500 ML, UNK
     Dates: start: 20080101, end: 20080104
  14. PYRIDOXINE HYDROCHLORIDE [Concomitant]
     Dosage: 1 DF, UNK
     Dates: start: 20080101, end: 20080104
  15. CYANOCOBALAMIN [Concomitant]
     Dosage: 1 DF, UNK
     Dates: start: 20080101, end: 20080104
  16. BENFOTIAMINE [Concomitant]
     Dosage: 1 DF, UNK
     Dates: start: 20080101, end: 20080104
  17. CEFMETAZON [Concomitant]
     Dosage: 1 G, UNK
     Dates: start: 20080101
  18. CEFMETAZON [Concomitant]
     Dosage: 2 G, UNK
     Dates: end: 20080105
  19. SODIUM CHLORIDE SOLUTION [Concomitant]
     Dosage: 100 ML, UNK
     Dates: start: 20080101
  20. SODIUM CHLORIDE SOLUTION [Concomitant]
     Dosage: 500 ML, UNK
     Dates: end: 20080105
  21. LOXONIN [Concomitant]
     Dosage: 60 MG, UNK
     Dates: start: 20080101, end: 20080101
  22. VOLTAREN [Concomitant]
     Dosage: 25 MG, UNK
     Route: 054
     Dates: start: 20080102, end: 20080102
  23. CEREKINON [Concomitant]
     Dosage: 200 MG, UNK
     Dates: start: 20080104
  24. CEREKINON [Concomitant]
     Dosage: 300 MG, UNK
     Dates: end: 20080106
  25. LAC B [Concomitant]
     Dosage: 2 G, UNK
     Dates: start: 20080104
  26. LAC B [Concomitant]
     Dosage: 3 G, UNK
     Dates: end: 20080106
  27. ADSORBIN [Concomitant]
     Dosage: 2 G, UNK
     Dates: start: 20080104
  28. ADSORBIN [Concomitant]
     Dosage: 3 G, UNK
     Dates: end: 20080106
  29. ALBUMIN TANNATE [Concomitant]
     Dosage: 2 G, UNK
     Dates: start: 20080104
  30. ALBUMIN TANNATE [Concomitant]
     Dosage: 3 G, UNK
     Dates: end: 20080106

REACTIONS (2)
  - ENTERITIS INFECTIOUS [None]
  - VIRAL INFECTION [None]
